FAERS Safety Report 4962031-2 (Version None)
Quarter: 2006Q2

REPORT INFORMATION
  Report Type: 
  Country: None (occurrence: None)
  Receive Date: 20060404
  Receipt Date: 20051221
  Transmission Date: 20061013
  Serious: Yes (Hospitalization, Disabling)
  Sender: FDA-Public Use
  Company Number: US-MERCK-0512USA03420

PATIENT
  Age: 58 Year
  Sex: Male
  Weight: 107 kg

DRUGS (11)
  1. VIOXX [Suspect]
     Indication: RHEUMATOID ARTHRITIS
     Route: 048
     Dates: start: 19990716, end: 20020415
  2. MINOCYCLINE [Concomitant]
     Route: 065
  3. HYDROCHLOROTHIAZIDE AND TRIAMTERENE [Concomitant]
     Route: 065
  4. AZULFIDINE [Concomitant]
     Route: 065
     Dates: start: 19981221, end: 20021029
  5. CLARITIN [Concomitant]
     Route: 065
  6. LEVOTHROID [Concomitant]
     Route: 065
  7. PENLAC [Concomitant]
     Route: 065
  8. SULFASALAZINE [Concomitant]
     Indication: RHEUMATOID ARTHRITIS
     Route: 065
     Dates: start: 19970726
  9. SULFASALAZINE [Concomitant]
     Indication: PAIN
     Route: 065
     Dates: start: 19970726
  10. SYNTHROID [Concomitant]
     Route: 065
  11. ASPIRIN [Concomitant]
     Route: 065
     Dates: start: 19860101

REACTIONS (8)
  - BENIGN NEOPLASM [None]
  - BLOOD CHOLESTEROL INCREASED [None]
  - CARDIAC DISORDER [None]
  - HERNIA [None]
  - INTESTINAL FUNCTIONAL DISORDER [None]
  - LIMB INJURY [None]
  - MUSCLE CONTRACTURE [None]
  - MYOCARDIAL INFARCTION [None]
